FAERS Safety Report 5135107-7 (Version None)
Quarter: 2006Q4

REPORT INFORMATION
  Report Type: 
  Country: None (occurrence: None)
  Receive Date: 20060831
  Receipt Date: 20060522
  Transmission Date: 20070319
  Serious: No
  Sender: FDA-Public Use
  Company Number: 2006-BP-05863BP

PATIENT
  Sex: Female

DRUGS (3)
  1. SPIRIVA [Suspect]
     Dosage: 18 MCG (18 MCG),IH
     Dates: start: 20050101
  2. ADVAIR (SERETIDE /01420901/) [Concomitant]
  3. ALBUTEROL [Concomitant]

REACTIONS (2)
  - AGEUSIA [None]
  - DRUG INEFFECTIVE [None]
